FAERS Safety Report 8459445 (Version 2)
Quarter: 2015Q3

REPORT INFORMATION
  Report Type: Spontaneous
  Country: US (occurrence: US)
  Receive Date: 20120314
  Receipt Date: 20150807
  Transmission Date: 20151125
  Serious: Yes (Life-Threatening, Other)
  Sender: FDA-Public Use
  Company Number: US-ASTRAZENECA-2011SE74338

PATIENT
  Age: 72 Year
  Sex: Female
  Weight: 56.7 kg

DRUGS (8)
  1. ASPIRIN. [Concomitant]
     Active Substance: ASPIRIN
     Indication: CARDIAC DISORDER
     Route: 048
  2. PHAZYME [Concomitant]
     Active Substance: DIMETHICONE 410
     Indication: GASTRIC DISORDER
     Route: 048
  3. ZANTAC [Concomitant]
     Active Substance: RANITIDINE HYDROCHLORIDE
     Indication: GASTROOESOPHAGEAL REFLUX DISEASE
     Route: 048
  4. MYLANTA [Concomitant]
     Active Substance: ALUMINUM HYDROXIDE\DIMETHICONE\MAGNESIUM HYDROXIDE
     Indication: GASTRIC DISORDER
     Route: 048
  5. VITAMIN B12 [Concomitant]
     Active Substance: CYANOCOBALAMIN
     Indication: VITAMIN SUPPLEMENTATION
  6. ARIMIDEX [Suspect]
     Active Substance: ANASTROZOLE
     Indication: CARDIAC DISORDER
     Route: 048
     Dates: start: 201506
  7. TOPROL XL [Suspect]
     Active Substance: METOPROLOL SUCCINATE
     Indication: CARDIAC DISORDER
     Route: 048
  8. MIDRIN [Concomitant]
     Active Substance: ACETAMINOPHEN\DICHLORALPHENAZONE\ISOMETHEPTENE
     Indication: MIGRAINE
     Route: 048

REACTIONS (9)
  - Pancreatitis chronic [Unknown]
  - Multiple allergies [Unknown]
  - Nervous system disorder [Not Recovered/Not Resolved]
  - Myocardial infarction [Unknown]
  - Lymphoma [Unknown]
  - Blood cholesterol increased [Unknown]
  - Gastric disorder [Not Recovered/Not Resolved]
  - Breast mass [Unknown]
  - Cataract [Unknown]

NARRATIVE: CASE EVENT DATE: 2002
